FAERS Safety Report 8480652-X (Version None)
Quarter: 2012Q3

REPORT INFORMATION
  Report Type: 
  Country: None (occurrence: None)
  Receive Date: 20120702
  Receipt Date: 20120627
  Transmission Date: 20120928
  Serious: No
  Sender: FDA-Public Use
  Company Number: US-PFIZER INC-2012155594

PATIENT
  Sex: Female
  Weight: 108 kg

DRUGS (11)
  1. AMLODIPINE [Concomitant]
     Dosage: 5 MG, 1X/DAY
  2. DIOVAN [Concomitant]
     Dosage: 320 MG, 1X/DAY
  3. CALCIUM [Concomitant]
  4. FLUOXETINE [Concomitant]
     Dosage: 20 MG, 1X/DAY
  5. ACETYLSALICYLIC ACID [Concomitant]
     Dosage: 162 MG (81MGX 2 TABS), 1X/DAY
  6. COREG [Concomitant]
     Dosage: 10 MG, 1X/DAY
  7. FISH OIL [Concomitant]
  8. SUTENT [Suspect]
     Dosage: 50 MG, CYCLIC, FOR THREE WEEKS
     Dates: start: 20120201
  9. SUTENT [Suspect]
     Dosage: 37.5 MG, TO BE TAKEN EVERY THIRD DAY
     Dates: start: 20120621
  10. HYDROCHLOROTHIAZIDE [Concomitant]
     Dosage: 25 MG, 1X/DAY
  11. VITAMIN D [Concomitant]

REACTIONS (1)
  - PRURITUS [None]
